FAERS Safety Report 17719117 (Version 2)
Quarter: 2020Q2

REPORT INFORMATION
  Report Type: Spontaneous
  Country: US (occurrence: US)
  Receive Date: 20200428
  Receipt Date: 20200504
  Transmission Date: 20200714
  Serious: No
  Sender: FDA-Public Use
  Company Number: US-PFIZER INC-2020170053

PATIENT
  Age: 22 Year
  Sex: Male

DRUGS (2)
  1. NIVESTYM [Suspect]
     Active Substance: FILGRASTIM-AAFI
     Indication: ACUTE LYMPHOCYTIC LEUKAEMIA
     Dosage: 300 UG, 2X/DAY
     Route: 058
  2. NIVESTYM [Suspect]
     Active Substance: FILGRASTIM-AAFI
     Dosage: 300 UG (300MCG/0.5ML, 2 INJ TODAY, 2 INJ TOMORROW)

REACTIONS (3)
  - Product dose omission [Unknown]
  - Off label use [Unknown]
  - Blood count abnormal [Unknown]
